FAERS Safety Report 21303274 (Version 4)
Quarter: 2022Q3

REPORT INFORMATION
  Report Type: Report from Study
  Country: US (occurrence: US)
  Receive Date: 20220907
  Receipt Date: 20220929
  Transmission Date: 20221027
  Serious: Yes (Other)
  Sender: FDA-Public Use
  Company Number: US-AMGEN-USACT2022150981

PATIENT
  Age: 68 Year
  Sex: Female
  Weight: 86.4 kg

DRUGS (3)
  1. EMIRODATAMAB [Suspect]
     Active Substance: EMIRODATAMAB
     Indication: Acute myeloid leukaemia
     Dosage: 18 MICROGRAM
     Route: 040
     Dates: start: 20220829
  2. EMIRODATAMAB [Suspect]
     Active Substance: EMIRODATAMAB
     Dosage: UNK
     Route: 040
     Dates: start: 20220906
  3. DEXAMETHASONE [Concomitant]
     Active Substance: DEXAMETHASONE
     Indication: Cytokine release syndrome
     Dosage: 8-10 MILLIGRAM
     Route: 042
     Dates: start: 20220829, end: 20220911

REACTIONS (1)
  - Blood bilirubin increased [Recovered/Resolved]

NARRATIVE: CASE EVENT DATE: 20220830
